FAERS Safety Report 24088504 (Version 2)
Quarter: 2024Q3

REPORT INFORMATION
  Report Type: Spontaneous
  Country: US (occurrence: US)
  Receive Date: 20240715
  Receipt Date: 20240909
  Transmission Date: 20241016
  Serious: No
  Sender: IPSEN
  Company Number: US-IPSEN Group, Research and Development-2024-13831

PATIENT
  Age: 37 Year
  Sex: Female
  Weight: 104.3 kg

DRUGS (1)
  1. TAZVERIK [Suspect]
     Active Substance: TAZEMETOSTAT HYDROBROMIDE
     Indication: Soft tissue sarcoma
     Dosage: TAKE 4 TABLETS BY MOUTH TWICE DAILY
     Route: 048
     Dates: start: 20240125

REACTIONS (2)
  - Sinusitis [Recovering/Resolving]
  - Hyperhidrosis [Unknown]
